FAERS Safety Report 6539736-5 (Version None)
Quarter: 2010Q1

REPORT INFORMATION
  Report Type: 
  Country: None (occurrence: None)
  Receive Date: 20100115
  Receipt Date: 20100113
  Transmission Date: 20100710
  Serious: Yes (Hospitalization, Disabling)
  Sender: FDA-Public Use
  Company Number: US-MERCK-0911USA00163

PATIENT
  Age: 52 Year
  Sex: Female
  Weight: 45 kg

DRUGS (3)
  1. FOSAMAX [Suspect]
     Indication: OSTEOPOROSIS
     Route: 048
     Dates: start: 19980101, end: 20081026
  2. PAXIL [Concomitant]
     Route: 065
  3. MAXALT [Concomitant]
     Route: 065

REACTIONS (17)
  - ACUTE PRERENAL FAILURE [None]
  - ANAEMIA [None]
  - BACK PAIN [None]
  - BLOOD CHOLESTEROL INCREASED [None]
  - CONTUSION [None]
  - FEMUR FRACTURE [None]
  - HAND FRACTURE [None]
  - HEADACHE [None]
  - HYPOKALAEMIA [None]
  - HYPOTHYROIDISM [None]
  - LOW TURNOVER OSTEOPATHY [None]
  - LUMBAR SPINAL STENOSIS [None]
  - MIGRAINE [None]
  - OSTEOMA [None]
  - SPONDYLOLISTHESIS [None]
  - STRESS FRACTURE [None]
  - VULVAL DISORDER [None]
